FAERS Safety Report 23375081 (Version 1)
Quarter: 2024Q1

REPORT INFORMATION
  Report Type: Other
  Country: GB (occurrence: GB)
  Receive Date: 20240106
  Receipt Date: 20240106
  Transmission Date: 20240410
  Serious: Yes (Disabling)
  Sender: FDA-Public Use
  Company Number: GB-MACLEODS PHARMA EU LTD-MAC2023045166

PATIENT

DRUGS (1)
  1. ARIPIPRAZOLE [Suspect]
     Active Substance: ARIPIPRAZOLE
     Indication: Schizophrenia
     Dosage: UNK UNK, QD  (15 TO 20 MG)
     Route: 065

REACTIONS (4)
  - Facial spasm [Recovered/Resolved]
  - Trismus [Recovered/Resolved]
  - Muscle spasms [Not Recovered/Not Resolved]
  - Chills [Unknown]
